FAERS Safety Report 6851485-2 (Version None)
Quarter: 2010Q3

REPORT INFORMATION
  Report Type: 
  Country: None (occurrence: None)
  Receive Date: 20100717
  Receipt Date: 20080220
  Transmission Date: 20110219
  Serious: No
  Sender: FDA-Public Use
  Company Number: US-PFIZER INC-2008004934

PATIENT
  Sex: Male
  Weight: 113.63 kg

DRUGS (8)
  1. CHANTIX [Suspect]
     Indication: SMOKING CESSATION THERAPY
     Dates: start: 20080102
  2. DRUG, UNSPECIFIED [Interacting]
  3. JUICE PLUS ^GARDEN BLEND^ [Concomitant]
  4. VITAMINS [Concomitant]
  5. MILK SUBSTITUTES [Concomitant]
  6. SERTRALINE HCL [Concomitant]
  7. ASPIRIN [Concomitant]
  8. ATORVASTATIN [Concomitant]

REACTIONS (3)
  - DRUG INEFFECTIVE [None]
  - DRUG INTERACTION [None]
  - NAUSEA [None]
